FAERS Safety Report 24762186 (Version 1)
Quarter: 2024Q4

REPORT INFORMATION
  Report Type: Spontaneous
  Country: US (occurrence: US)
  Receive Date: 20241221
  Receipt Date: 20241221
  Transmission Date: 20250115
  Serious: Yes (Life-Threatening, Other)
  Sender: AMGEN
  Company Number: US-AMGEN-USASP2024246163

PATIENT
  Age: 46 Year
  Sex: Female

DRUGS (11)
  1. RITUXIMAB [Suspect]
     Active Substance: RITUXIMAB
     Indication: Chronic myelomonocytic leukaemia
     Dosage: 375 MILLIGRAM/SQ. METER, QWK
     Route: 040
     Dates: start: 2024
  2. CLADRIBINE [Concomitant]
     Active Substance: CLADRIBINE
     Indication: Chronic myelomonocytic leukaemia
     Dosage: 5 MILLIGRAM/SQ. METER
     Dates: start: 2024
  3. CLADRIBINE [Concomitant]
     Active Substance: CLADRIBINE
     Dosage: UNK (REINDUCTION FOR 5 DAYS)
  4. CYTARABINE [Concomitant]
     Active Substance: CYTARABINE
     Indication: Chronic myelomonocytic leukaemia
     Dosage: 20 MILLIGRAM, BID, FOR 10 DAYS
     Route: 058
     Dates: start: 2024
  5. CYTARABINE [Concomitant]
     Active Substance: CYTARABINE
     Dosage: UNK, LOW DOSE
     Dates: start: 2024
  6. GILTERITINIB [Concomitant]
     Active Substance: GILTERITINIB
     Indication: Chronic myelomonocytic leukaemia
     Dosage: 80 MILLIGRAM, QD
     Dates: start: 2024
  7. GILTERITINIB [Concomitant]
     Active Substance: GILTERITINIB
     Dosage: 80 MILLIGRAM, QD
     Dates: start: 2024
  8. HUMAN IMMUNOGLOBULIN G [Concomitant]
     Active Substance: HUMAN IMMUNOGLOBULIN G
     Indication: Chronic myelomonocytic leukaemia
     Dosage: UNK (2 MG/KG)
     Route: 040
     Dates: start: 2024
  9. CYCLOSPORINE [Concomitant]
     Active Substance: CYCLOSPORINE
     Indication: Chronic myelomonocytic leukaemia
     Dosage: 200 MILLIGRAM, BID
     Dates: start: 2024
  10. METHYLPREDNISOLONE [Concomitant]
     Active Substance: METHYLPREDNISOLONE
     Indication: Chronic myelomonocytic leukaemia
     Dosage: 1 MILLIGRAM/KILOGRAM (5 DAYS)
     Dates: start: 2024
  11. METHYLPREDNISOLONE [Concomitant]
     Active Substance: METHYLPREDNISOLONE
     Dosage: UNK, QWK (TAPER)

REACTIONS (6)
  - Haemoglobin decreased [Unknown]
  - Chronic myelomonocytic leukaemia [Not Recovered/Not Resolved]
  - Delayed haemolytic transfusion reaction [Unknown]
  - Haemolytic anaemia [Unknown]
  - Hepatic enzyme increased [Unknown]
  - Blood bilirubin increased [Unknown]

NARRATIVE: CASE EVENT DATE: 20240101
